FAERS Safety Report 7752592-2 (Version None)
Quarter: 2011Q3

REPORT INFORMATION
  Report Type: 
  Country: None (occurrence: None)
  Receive Date: 20110915
  Receipt Date: 20110906
  Transmission Date: 20111222
  Serious: Yes (Hospitalization)
  Sender: FDA-Public Use
  Company Number: DE-UCBSA-040757

PATIENT
  Sex: Female
  Weight: 19 kg

DRUGS (4)
  1. TOPIRAMATE [Suspect]
     Dosage: UNKNOWN QUANTITY
  2. LAMOTRIGINE [Suspect]
     Dosage: TOTAL AMOUNT:750 MG
  3. VALPROIC ACID [Suspect]
     Dosage: UNKNOWN QUANTITY
  4. KEPPRA [Suspect]
     Dosage: UNKNOWN QUANTITY

REACTIONS (5)
  - RASH [None]
  - LISTLESS [None]
  - ACCIDENTAL EXPOSURE [None]
  - CONVULSION [None]
  - VOMITING [None]
